FAERS Safety Report 16163137 (Version 1)
Quarter: 2019Q2

REPORT INFORMATION
  Report Type: Spontaneous
  Country: CO (occurrence: CO)
  Receive Date: 20190405
  Receipt Date: 20190405
  Transmission Date: 20190711
  Serious: Yes (Hospitalization, Other)
  Sender: FDA-Public Use
  Company Number: CO-SA-2019SA092798

PATIENT
  Age: 17 Year
  Sex: Male

DRUGS (2)
  1. NICOTINE. [Suspect]
     Active Substance: NICOTINE
     Route: 065
  2. COCAINE [Suspect]
     Active Substance: COCAINE
     Route: 065

REACTIONS (10)
  - Withdrawal syndrome [Unknown]
  - Psychotic disorder [Recovered/Resolved]
  - Judgement impaired [Recovered/Resolved]
  - Hallucination [Recovered/Resolved]
  - Delusion [Recovered/Resolved]
  - Substance use disorder [Unknown]
  - Drug abuse [Unknown]
  - Insomnia [Recovered/Resolved]
  - Aggression [Unknown]
  - Impaired reasoning [Recovered/Resolved]

NARRATIVE: CASE EVENT DATE: 2017
